FAERS Safety Report 8791074 (Version 1)
Quarter: 2012Q4

REPORT INFORMATION
  Report Type: Spontaneous
  Country: US (occurrence: None)
  Receive Date: 20120913
  Receipt Date: 20120913
  Transmission Date: 20130627
  Serious: Yes (Other)
  Sender: FDA-Public Use
  Company Number: None

PATIENT
  Age: 52 Year
  Sex: Male
  Weight: 99.79 kg

DRUGS (1)
  1. LOSARTAN [Suspect]
     Dates: start: 20120115, end: 20120802

REACTIONS (2)
  - Oedema peripheral [None]
  - Petechiae [None]
